FAERS Safety Report 7333457-7 (Version None)
Quarter: 2011Q1

REPORT INFORMATION
  Report Type: 
  Country: None (occurrence: None)
  Receive Date: 20110304
  Receipt Date: 20110302
  Transmission Date: 20110831
  Serious: Yes (Life-Threatening, Hospitalization, Disabling)
  Sender: FDA-Public Use
  Company Number: PHFR2011GB01686

PATIENT
  Age: 15 Year
  Sex: Female
  Weight: 68 kg

DRUGS (9)
  1. BASILIXIMAB [Suspect]
     Indication: CROHN'S DISEASE
     Dosage: 20 MG, UNK
     Route: 042
     Dates: start: 20100801
  2. BASILIXIMAB [Suspect]
     Indication: IMMUNOSUPPRESSION
  3. INFLIXIMAB [Suspect]
     Indication: STEM CELL TRANSPLANT
  4. URSODIOL [Concomitant]
     Dosage: UNK DF, UNK
  5. THALIDOMIDE [Concomitant]
     Dosage: UNK DF, UNK
  6. METHOTREXATE [Concomitant]
     Dosage: UNK DF, UNK
  7. INFLIXIMAB [Suspect]
     Indication: CROHN'S DISEASE
     Dosage: UNK DF, UNK
     Route: 042
     Dates: start: 20100801
  8. INFLIXIMAB [Suspect]
     Indication: IMMUNOSUPPRESSION
  9. BASILIXIMAB [Suspect]
     Indication: STEM CELL TRANSPLANT

REACTIONS (3)
  - RENAL FAILURE ACUTE [None]
  - EXTREMITY NECROSIS [None]
  - KLEBSIELLA SEPSIS [None]
